FAERS Safety Report 6219049-1 (Version None)
Quarter: 2009Q2

REPORT INFORMATION
  Report Type: 
  Country: None (occurrence: None)
  Receive Date: 20090608
  Receipt Date: 20090529
  Transmission Date: 20091009
  Serious: Yes (Hospitalization)
  Sender: FDA-Public Use
  Company Number: FR-MERCK-0905FRA00103

PATIENT
  Age: 71 Year
  Sex: Female

DRUGS (4)
  1. ZETIA [Suspect]
     Route: 048
     Dates: start: 20080201, end: 20090317
  2. NITROFURANTOIN [Suspect]
     Indication: INFECTION PROPHYLAXIS
     Route: 048
     Dates: start: 20080301, end: 20090317
  3. HYDROCHLOROTHIAZIDE AND VALSARTAN [Suspect]
     Route: 048
     Dates: start: 20070101, end: 20090317
  4. ATORVASTATIN CALCIUM [Suspect]
     Route: 048
     Dates: start: 20080201, end: 20090317

REACTIONS (2)
  - AUTOIMMUNE HEPATITIS [None]
  - HEPATIC CIRRHOSIS [None]
